FAERS Safety Report 14093873 (Version 1)
Quarter: 2017Q4

REPORT INFORMATION
  Report Type: Spontaneous
  Country: US (occurrence: US)
  Receive Date: 20171016
  Receipt Date: 20171016
  Transmission Date: 20180321
  Serious: Yes (Disabling, Other)
  Sender: FDA-Public Use
  Company Number: US-PFIZER INC-2017438607

PATIENT
  Age: 84 Year
  Sex: Female
  Weight: 55.79 kg

DRUGS (1)
  1. LYRICA [Suspect]
     Active Substance: PREGABALIN
     Indication: FIBROMYALGIA
     Dosage: 50 MG, 1X/DAY (AT NIGHT)

REACTIONS (13)
  - Hypoacusis [Not Recovered/Not Resolved]
  - Fat tissue increased [Unknown]
  - Intentional product use issue [Unknown]
  - Pneumonia [Unknown]
  - Pain in extremity [Unknown]
  - Dizziness [Unknown]
  - Peripheral arterial occlusive disease [Unknown]
  - Drug effect incomplete [Unknown]
  - Feeling hot [Unknown]
  - Nervousness [Unknown]
  - Peripheral swelling [Unknown]
  - Joint stiffness [Unknown]
  - Condition aggravated [Not Recovered/Not Resolved]

NARRATIVE: CASE EVENT DATE: 201709
